FAERS Safety Report 6646611-4 (Version None)
Quarter: 2010Q1

REPORT INFORMATION
  Report Type: 
  Country: None (occurrence: None)
  Receive Date: 20100323
  Receipt Date: 20100319
  Transmission Date: 20100710
  Serious: Yes (Other)
  Sender: FDA-Public Use
  Company Number: JP-ABBOTT-10P-087-0631299-00

PATIENT
  Sex: Male
  Weight: 58 kg

DRUGS (7)
  1. ULTIVA [Suspect]
     Indication: ANALGESIC THERAPY
     Dosage: 0.05-0.5 MCG/KG/MINX4HRS.(CONTINUOUS ADMINISTRATION)
     Route: 042
     Dates: start: 20090826, end: 20090826
  2. SEVOFLURANE [Suspect]
     Indication: INDUCTION AND MAINTENANCE OF ANAESTHESIA
     Dosage: 1.5%X4.5HRS.(CONTINUOUS ADMINISTRATION)
     Route: 055
     Dates: start: 20090826, end: 20090826
  3. FENTANYL [Suspect]
     Indication: INDUCTION AND MAINTENANCE OF ANAESTHESIA
     Route: 042
     Dates: start: 20090826, end: 20090827
  4. FENTANYL [Suspect]
     Indication: ANALGESIC THERAPY
     Route: 042
     Dates: start: 20090826, end: 20090827
  5. MIDAZOLAM HCL [Concomitant]
     Indication: INDUCTION AND MAINTENANCE OF ANAESTHESIA
     Route: 042
     Dates: start: 20090826, end: 20090826
  6. ROCURONIUM BROMIDE [Concomitant]
     Indication: INDUCTION AND MAINTENANCE OF ANAESTHESIA
     Route: 042
     Dates: start: 20090826, end: 20090826
  7. ROCURONIUM BROMIDE [Concomitant]
     Indication: HYPOTONIA
     Route: 042
     Dates: start: 20090826, end: 20090826

REACTIONS (5)
  - CHILLS [None]
  - HYPERTHERMIA MALIGNANT [None]
  - MUSCULOSKELETAL STIFFNESS [None]
  - MYOTONIA [None]
  - PYREXIA [None]
